FAERS Safety Report 6754376-0 (Version None)
Quarter: 2010Q2

REPORT INFORMATION
  Report Type: 
  Country: None (occurrence: None)
  Receive Date: 20100603
  Receipt Date: 20100602
  Transmission Date: 20101027
  Serious: Yes (Hospitalization, Other)
  Sender: FDA-Public Use
  Company Number: US-ROXANE LABORATORIES, INC.-2010-RO-00680RO

PATIENT
  Sex: Male
  Weight: 91 kg

DRUGS (15)
  1. PREDNISONE [Suspect]
     Indication: DIFFUSE LARGE B-CELL LYMPHOMA
     Dosage: 100 MG
     Route: 048
     Dates: start: 20090924, end: 20090927
  2. NAPROXEN [Suspect]
     Indication: OSTEOARTHRITIS
     Dates: start: 20000601, end: 20090927
  3. ENZASTAURIN [Suspect]
     Indication: DIFFUSE LARGE B-CELL LYMPHOMA
     Dosage: 1125 MG
     Route: 048
     Dates: start: 20090925, end: 20090925
  4. ENZASTAURIN [Suspect]
     Dosage: 500 MG
     Route: 048
     Dates: start: 20090926, end: 20090928
  5. RITUXIMAB [Suspect]
     Indication: DIFFUSE LARGE B-CELL LYMPHOMA
     Route: 042
     Dates: start: 20090924, end: 20090924
  6. CYCLOPHOSPHAMIDE [Suspect]
     Indication: DIFFUSE LARGE B-CELL LYMPHOMA
     Route: 042
     Dates: start: 20090924, end: 20090924
  7. DOXORUBICIN HCL [Suspect]
     Indication: DIFFUSE LARGE B-CELL LYMPHOMA
     Route: 042
     Dates: start: 20090924, end: 20090924
  8. VINCRISTINE [Suspect]
     Indication: DIFFUSE LARGE B-CELL LYMPHOMA
     Route: 042
     Dates: start: 20090924, end: 20090924
  9. SIMVASTATIN [Concomitant]
     Indication: DYSLIPIDAEMIA
     Dates: start: 20000601
  10. BUPROPION HCL [Concomitant]
     Indication: DEPRESSION
     Dates: start: 20090601
  11. TRAZODONE HCL [Concomitant]
     Indication: OSTEOARTHRITIS
     Dates: start: 20090601
  12. ALLOPURINOL [Concomitant]
     Indication: PROPHYLAXIS
     Dates: start: 20090924
  13. OMEPRAZOLE [Concomitant]
     Indication: GASTROOESOPHAGEAL REFLUX DISEASE
     Dates: start: 20000601
  14. FINASTERIDE [Concomitant]
     Indication: BENIGN PROSTATIC HYPERPLASIA
     Dates: end: 20090927
  15. ASPIRIN [Concomitant]
     Indication: PROPHYLAXIS
     Dates: start: 20000601, end: 20090927

REACTIONS (4)
  - HAEMOGLOBIN DECREASED [None]
  - HIATUS HERNIA [None]
  - OESOPHAGEAL ULCER HAEMORRHAGE [None]
  - SYNCOPE [None]
